FAERS Safety Report 16937150 (Version 2)
Quarter: 2020Q1

REPORT INFORMATION
  Report Type: Spontaneous
  Country: FR (occurrence: FR)
  Receive Date: 20191019
  Receipt Date: 20200109
  Transmission Date: 20200409
  Serious: Yes (Other)
  Sender: FDA-Public Use
  Company Number: FR-ROCHE-2436065

PATIENT
  Age: 41 Year
  Sex: Female

DRUGS (1)
  1. RITUXIMAB. [Suspect]
     Active Substance: RITUXIMAB
     Indication: SECONDARY PROGRESSIVE MULTIPLE SCLEROSIS
     Route: 065
     Dates: start: 20160601, end: 20190927

REACTIONS (4)
  - Off label use [Unknown]
  - Intentional product use issue [Unknown]
  - Neoplasm [Unknown]
  - Expanded disability status scale score increased [Unknown]
